FAERS Safety Report 17151936 (Version 2)
Quarter: 2020Q1

REPORT INFORMATION
  Report Type: Spontaneous
  Country: JP (occurrence: JP)
  Receive Date: 20191213
  Receipt Date: 20200117
  Transmission Date: 20200409
  Serious: Yes (Hospitalization)
  Sender: FDA-Public Use
  Company Number: JP-PFIZER INC-2019534068

PATIENT
  Age: 68 Year
  Sex: Female
  Weight: 47.6 kg

DRUGS (10)
  1. PROPETO [Concomitant]
     Active Substance: PETROLATUM
     Dosage: UNK
  2. MIYA-BM [Concomitant]
     Active Substance: CLOSTRIDIUM BUTYRICUM SPORES STRAIN M-55
     Dosage: UNK
  3. LANSOPRAZOLE. [Concomitant]
     Active Substance: LANSOPRAZOLE
     Dosage: UNK
  4. RIMATIL [Concomitant]
     Active Substance: BUCILLAMINE
     Dosage: UNK
  5. BISOLVON [Concomitant]
     Active Substance: BROMHEXINE HYDROCHLORIDE
     Dosage: UNK
  6. VASOLAN [VERAPAMIL HYDROCHLORIDE] [Concomitant]
     Active Substance: VERAPAMIL HYDROCHLORIDE
  7. ZYVOX [Suspect]
     Active Substance: LINEZOLID
     Indication: INFECTION
     Dosage: 600 MG, 2X/DAY
     Route: 042
     Dates: start: 20190720, end: 20190730
  8. DANTRIUM [Concomitant]
     Active Substance: DANTROLENE SODIUM
     Dosage: UNK
     Dates: start: 20190718
  9. BILANOA [Concomitant]
     Active Substance: BILASTINE
     Dosage: UNK
     Dates: start: 20190718
  10. FUROSEMIDE EMEC [Concomitant]
     Dosage: UNK

REACTIONS (8)
  - Infusion site extravasation [Recovering/Resolving]
  - Infusion site oedema [Recovering/Resolving]
  - Infusion site erosion [Recovering/Resolving]
  - Macule [Unknown]
  - Infusion site vesicles [Recovering/Resolving]
  - Capillary leak syndrome [Recovering/Resolving]
  - Oedema peripheral [Recovering/Resolving]
  - Infusion site rash [Recovering/Resolving]

NARRATIVE: CASE EVENT DATE: 20190723
